FAERS Safety Report 8228040-5 (Version None)
Quarter: 2012Q1

REPORT INFORMATION
  Report Type: 
  Country: None (occurrence: None)
  Receive Date: 20120322
  Receipt Date: 20120112
  Transmission Date: 20120608
  Serious: No
  Sender: FDA-Public Use
  Company Number: US-BRISTOL-MYERS SQUIBB COMPANY-16348062

PATIENT
  Age: 57 Year
  Sex: Female
  Weight: 73 kg

DRUGS (1)
  1. ERBITUX [Suspect]
     Indication: THROAT CANCER
     Dates: start: 20120111

REACTIONS (2)
  - SCAB [None]
  - ERYTHEMA [None]
